FAERS Safety Report 5881356-X (Version None)
Quarter: 2008Q3

REPORT INFORMATION
  Report Type: 
  Country: None (occurrence: None)
  Receive Date: 20080911
  Receipt Date: 20080829
  Transmission Date: 20090109
  Serious: Yes (Hospitalization)
  Sender: FDA-Public Use
  Company Number: 2008BI022603

PATIENT
  Age: 51 Year
  Sex: Female

DRUGS (8)
  1. TYSABRI [Suspect]
     Indication: MULTIPLE SCLEROSIS
     Dosage: 300 MG; QM; IV
     Dates: start: 20070910
  2. CELEXA [Concomitant]
  3. HYDROCHLOROTHIAZIDE [Concomitant]
  4. OMEPRAZOLE [Concomitant]
  5. PERCOCET [Concomitant]
  6. ALLEGRA [Concomitant]
  7. ZYRTEC [Concomitant]
  8. AVONEX [Concomitant]

REACTIONS (7)
  - DEMYELINATION [None]
  - FALL [None]
  - FIBULA FRACTURE [None]
  - HAEMATOCRIT DECREASED [None]
  - HAEMOGLOBIN DECREASED [None]
  - INTERVERTEBRAL DISC DISORDER [None]
  - PAIN [None]
